FAERS Safety Report 22604922 (Version 1)
Quarter: 2023Q2

REPORT INFORMATION
  Report Type: Spontaneous
  Country: None (occurrence: FR)
  Receive Date: 20230615
  Receipt Date: 20230615
  Transmission Date: 20230722
  Serious: Yes (Death, Hospitalization, Other)
  Sender: FDA-Public Use
  Company Number: FR-B.Braun Medical Inc.-2142737

PATIENT
  Age: 14 Year
  Sex: Female
  Weight: 82 kg

DRUGS (20)
  1. MEROPENEM\SODIUM CHLORIDE [Suspect]
     Active Substance: MEROPENEM\SODIUM CHLORIDE
     Indication: Sepsis
  2. SEVOFLURANE [Suspect]
     Active Substance: SEVOFLURANE
  3. LINEZOLID [Suspect]
     Active Substance: LINEZOLID
  4. ONDANSETRON [Suspect]
     Active Substance: ONDANSETRON
  5. SUFENTANIL [Suspect]
     Active Substance: SUFENTANIL
  6. MIDAZOLAM [Suspect]
     Active Substance: MIDAZOLAM
  7. CLOXACILLIN SODIUM [Suspect]
     Active Substance: CLOXACILLIN SODIUM
  8. PROPOFOL [Suspect]
     Active Substance: PROPOFOL
  9. SUCCINYLCHOLINE [Concomitant]
     Active Substance: SUCCINYLCHOLINE
  10. CLAFORAN [Concomitant]
     Active Substance: CEFOTAXIME SODIUM
  11. ATROPINE [Concomitant]
     Active Substance: ATROPINE
  12. NUBAIN [Concomitant]
     Active Substance: NALBUPHINE HYDROCHLORIDE
  13. FLUDROCORTISONE [Concomitant]
     Active Substance: FLUDROCORTISONE
  14. HYDROCORTISONE [Concomitant]
     Active Substance: HYDROCORTISONE
  15. EMLA [Concomitant]
     Active Substance: LIDOCAINE\PRILOCAINE
  16. FOSFOMYCIN [Concomitant]
     Active Substance: FOSFOMYCIN
  17. PREDNISOLONE [Concomitant]
     Active Substance: PREDNISOLONE
  18. LOVENOX [Concomitant]
     Active Substance: ENOXAPARIN SODIUM
  19. VANCOMYCIN [Concomitant]
     Active Substance: VANCOMYCIN
  20. EPHEDRINE [Concomitant]
     Active Substance: EPHEDRINE

REACTIONS (2)
  - Generalised tonic-clonic seizure [Fatal]
  - Cardio-respiratory arrest [Fatal]
